FAERS Safety Report 17979925 (Version 1)
Quarter: 2020Q3

REPORT INFORMATION
  Report Type: Spontaneous
  Country: SE (occurrence: SE)
  Receive Date: 20200703
  Receipt Date: 20200703
  Transmission Date: 20201103
  Serious: Yes (Other)
  Sender: FDA-Public Use
  Company Number: SE-AMGEN-SWESP2020105646

PATIENT
  Age: 48 Year
  Sex: Female

DRUGS (2)
  1. AIMOVIG [Suspect]
     Active Substance: ERENUMAB-AOOE
     Indication: MIGRAINE
     Dosage: 70 MG I 3 M?NADER SEDAN H?JNING TILL 140 MG (INJECTION)
     Route: 058
     Dates: start: 20191114, end: 20191212
  2. AIMOVIG [Suspect]
     Active Substance: ERENUMAB-AOOE
     Dosage: (70 MG I 3 M?NADER SEDAN H?JNING TILL 140 MG)(INJECTION)
     Route: 058
     Dates: start: 201908, end: 20191113

REACTIONS (2)
  - Muscle spasms [Recovered/Resolved]
  - Myalgia [Recovered/Resolved]

NARRATIVE: CASE EVENT DATE: 2019
